FAERS Safety Report 11971643 (Version 1)
Quarter: 2016Q1

REPORT INFORMATION
  Report Type: Spontaneous
  Country: US (occurrence: US)
  Receive Date: 20160128
  Receipt Date: 20160128
  Transmission Date: 20160526
  Serious: Yes (Other)
  Sender: FDA-Public Use
  Company Number: US-LPDUSPRD-20160063

PATIENT
  Age: 28 Year
  Sex: Female

DRUGS (1)
  1. MAGNESIUM SULFATE INJECTION, USP (2650-25) [Suspect]
     Active Substance: MAGNESIUM SULFATE
     Dosage: DOSE NOT PROVIDED
     Route: 065

REACTIONS (1)
  - Bradycardia [Unknown]
